FAERS Safety Report 9832078 (Version 2)
Quarter: 2014Q2

REPORT INFORMATION
  Report Type: Spontaneous
  Country: US (occurrence: US)
  Receive Date: 20140121
  Receipt Date: 20140410
  Transmission Date: 20141212
  Serious: Yes (Hospitalization, Other)
  Sender: FDA-Public Use
  Company Number: PHEH2014US001300

PATIENT
  Age: 56 Year
  Sex: Female

DRUGS (57)
  1. RECLAST [Suspect]
     Indication: OSTEOPOROSIS
     Dosage: UNK UKN, UNK
     Route: 042
  2. RECLAST [Suspect]
     Dosage: 5 MG/100ML, UNK
     Route: 042
     Dates: start: 20130521
  3. HYDROCHLOROTHIAZIDE [Concomitant]
     Dosage: UNK UKN, UNK
  4. SIMVASTATIN [Concomitant]
     Dosage: UNK UKN, UNK
  5. OMEPRAZOLE [Concomitant]
     Dosage: UNK UKN, UNK
  6. AMITRIPTYLINE [Concomitant]
     Dosage: UNK UKN, UNK
  7. ZANAFLEX [Concomitant]
     Dosage: 1 DF, 05 TIMES DAILY
     Route: 048
  8. DIAZEPAM [Concomitant]
     Dosage: 10 MG, QD
  9. GABAPENTIN [Concomitant]
     Dosage: 300 MG, TID
  10. AMLODIPINE [Concomitant]
     Dosage: 2.5 MG, HS
  11. MODAFINIL [Concomitant]
     Dosage: 200 MG, QD
  12. VITAMIN B12 [Concomitant]
     Dosage: UNK UKN, UNK
  13. APO-FOLIC ACID [Concomitant]
     Dosage: UNK UKN, UNK
  14. FISH OIL [Concomitant]
     Dosage: UNK UKN, UNK
  15. AMPYRA [Concomitant]
     Indication: MULTIPLE SCLEROSIS
     Dosage: UNK UKN, QD
  16. ALPRAZOLAM [Concomitant]
     Indication: ANXIETY
     Dosage: 1 DF, TID, AS NEEDED
     Route: 048
  17. AMINO ACIDS [Concomitant]
     Dosage: 1 DF, QD
     Route: 048
  18. ELAVIL [Concomitant]
     Dosage: 1 DF, AT BEDTIME
     Route: 048
  19. ASCORBIC ACID [Concomitant]
     Dosage: 1000 MG, QD
     Route: 048
  20. ASPIRIN [Concomitant]
     Dosage: 0.5 DF, DAILY
     Route: 048
  21. BIOTIN [Concomitant]
     Dosage: 300 UG, QD
     Route: 048
  22. CALTRATE [Concomitant]
     Dosage: 600 MG, BID
     Route: 048
  23. VITAMIN D3 [Concomitant]
     Dosage: 5000 U, BID
     Route: 048
  24. COQ-10 [Concomitant]
     Dosage: 100 MG, QD
     Route: 048
  25. COQ-10 [Concomitant]
     Dosage: 200 MG, QD
     Route: 048
  26. VALIUM [Concomitant]
     Indication: MUSCLE SPASMS
     Dosage: 1 DF, UP TO 03 TIMES DAILY
  27. VALIUM [Concomitant]
     Indication: ANXIETY
  28. VIBRAMYCIN//DOXYCYCLINE [Concomitant]
     Dosage: 1 DF, BID
     Route: 048
  29. FISH OIL CONCENTRATE [Concomitant]
     Dosage: 2 DF, BID
     Route: 048
  30. FOLIC ACID [Concomitant]
     Dosage: 1 DF, QD, WITH B-12
     Route: 048
  31. B-12 [Concomitant]
     Dosage: UNK
  32. GARLIC [Concomitant]
     Dosage: 1 DF, QD
     Route: 048
  33. GINKGO BILOBA [Concomitant]
     Dosage: 1 DF, QD
     Route: 048
  34. GLUCOSAMINE /CHOND                 /01639101/ [Concomitant]
     Dosage: 1 DF, TID (500 UNITS NOT SPECIFIED)
     Route: 048
  35. MICROZIDE [Concomitant]
     Dosage: 1 DF, QD
     Route: 048
  36. LECITHIN [Concomitant]
     Dosage: 1 DF, QD
     Route: 048
  37. MAGNESIUM [Concomitant]
     Dosage: UNK
     Route: 048
  38. PROVIGIL//MODAFINIL [Concomitant]
     Indication: FATIGUE
     Dosage: 1 DF, AS NEEDED FOR FATIGUE
     Route: 048
  39. PROVIGIL//MODAFINIL [Concomitant]
     Dosage: 1 DF, EVERY MORNING FOR 03 MONTH
     Route: 048
  40. NICODERM CQ [Concomitant]
     Dosage: 7 MG/24HR, AS INSTRUCTED
  41. NICORELIEF [Concomitant]
     Dosage: 2 MG GUM, AS INSTRUCTED
  42. PRILOSEC [Concomitant]
     Dosage: 1 DF, BID, BEFORE MEAL
     Route: 048
  43. ZANTAC [Concomitant]
     Dosage: 1 DF, AT 10 PM ON 10/27 AND 9AM ON 10/28
     Route: 048
  44. PREDNISONE [Concomitant]
     Dosage: UNK
  45. BENADRYL [Concomitant]
     Dosage: UNK
  46. SELENIUM [Concomitant]
     Dosage: 1 DF, QD
     Route: 048
  47. ZOCOR [Concomitant]
     Dosage: 0.5 MG, AT BEDTIME
     Route: 048
  48. THERAGRAN-M [Concomitant]
     Dosage: 1 DF, QD WITH BREAKFAST
     Route: 048
  49. DETROL [Concomitant]
     Dosage: UNK, 03 MONTH
  50. DETROL LA [Concomitant]
     Dosage: 1 DF, QD
     Route: 048
  51. RETIN-A [Concomitant]
     Indication: ACNE
     Dosage: QD, AT BEDTIME
  52. VITAMIN B 12 [Concomitant]
     Dosage: 1 DF, QD
     Route: 048
  53. VITAMIN E [Concomitant]
     Dosage: 1 DF, QD
     Route: 048
  54. ZINCATE [Concomitant]
     Dosage: 220 MG, QD, 50 MG ELEMENTAL
     Route: 048
  55. DALFAMPRIDINE [Concomitant]
     Dosage: 2 DF, BID
  56. CALCIUM [Concomitant]
     Dosage: 1200 MG, QD
  57. VITAMIN D [Concomitant]
     Dosage: 800 IU, QD

REACTIONS (16)
  - Renal failure [Unknown]
  - Hypercalcaemia [Recovered/Resolved]
  - Oesophageal ulcer [Unknown]
  - Gastric ulcer [Unknown]
  - Renal failure acute [Recovered/Resolved]
  - Limb injury [Unknown]
  - Neuralgia [Unknown]
  - Pain in extremity [Unknown]
  - Osteopenia [Unknown]
  - Weight decreased [Unknown]
  - Abasia [Unknown]
  - Vitamin D increased [Unknown]
  - Asthenia [Unknown]
  - Pain [Unknown]
  - Blood pressure diastolic decreased [Unknown]
  - Blood pressure systolic increased [Unknown]
